FAERS Safety Report 24534675 (Version 1)
Quarter: 2024Q4

REPORT INFORMATION
  Report Type: Spontaneous
  Country: CN (occurrence: CN)
  Receive Date: 20241022
  Receipt Date: 20241022
  Transmission Date: 20250115
  Serious: Yes (Other)
  Sender: BAXTER
  Company Number: None

PATIENT
  Age: 64 Year
  Sex: Male
  Weight: 51.4 kg

DRUGS (3)
  1. MANNITOL [Suspect]
     Active Substance: MANNITOL
     Indication: Brain neoplasm
     Dosage: 100 ML TWICE DAILY, DOSAGE FORM: INJECTION SOLUTION
     Route: 041
     Dates: start: 20240930, end: 20241007
  2. MANNITOL [Suspect]
     Active Substance: MANNITOL
     Indication: Neoplasm malignant
  3. MANNITOL [Suspect]
     Active Substance: MANNITOL
     Indication: Reduction of increased intracranial pressure

REACTIONS (2)
  - Phlebitis [Recovering/Resolving]
  - Injection site pain [Recovering/Resolving]

NARRATIVE: CASE EVENT DATE: 20241001
